FAERS Safety Report 11477662 (Version 1)
Quarter: 2015Q3

REPORT INFORMATION
  Report Type: Spontaneous
  Country: US (occurrence: US)
  Receive Date: 20150909
  Receipt Date: 20150909
  Transmission Date: 20151125
  Serious: No
  Sender: FDA-Public Use
  Company Number: US-JAZZ-2014-US-010417

PATIENT
  Sex: Female
  Weight: 52.15 kg

DRUGS (5)
  1. XYREM [Suspect]
     Active Substance: SODIUM OXYBATE
     Dosage: 3 G, SECOND DOSE
     Route: 048
     Dates: start: 2014
  2. MIRTAZEPINE TEVA [Suspect]
     Active Substance: MIRTAZAPINE
     Indication: PRODUCT USED FOR UNKNOWN INDICATION
     Dosage: UNK
  3. XYREM [Suspect]
     Active Substance: SODIUM OXYBATE
     Dosage: DOSE ADJUSTMENTS
     Route: 048
  4. XYREM [Suspect]
     Active Substance: SODIUM OXYBATE
     Indication: NARCOLEPSY
     Dosage: 3 G, BID
     Route: 048
     Dates: start: 201108, end: 2011
  5. XYREM [Suspect]
     Active Substance: SODIUM OXYBATE
     Dosage: 4 G, FIRST DOSE
     Route: 048
     Dates: start: 2014

REACTIONS (8)
  - Sudden onset of sleep [Unknown]
  - Insomnia [None]
  - Adverse event [Unknown]
  - Sedation [Not Recovered/Not Resolved]
  - Drug effect decreased [None]
  - Stress [Not Recovered/Not Resolved]
  - Hunger [Not Recovered/Not Resolved]
  - Initial insomnia [Not Recovered/Not Resolved]
